FAERS Safety Report 24339286 (Version 1)
Quarter: 2024Q3

REPORT INFORMATION
  Report Type: Spontaneous
  Country: US (occurrence: US)
  Receive Date: 20240919
  Receipt Date: 20240919
  Transmission Date: 20241016
  Serious: No
  Sender: MERCK
  Company Number: US-009507513-2409USA004765

PATIENT
  Age: 85 Year
  Sex: Male

DRUGS (4)
  1. STROMECTOL [Suspect]
     Active Substance: IVERMECTIN
     Indication: Drug eruption
     Dosage: UNK
  2. PREDNISONE [Concomitant]
     Active Substance: PREDNISONE
     Indication: Drug eruption
     Dosage: UNK
  3. TRIAMCINOLONE [Concomitant]
     Active Substance: TRIAMCINOLONE
     Indication: Drug eruption
  4. HYDROXYZINE [Concomitant]
     Active Substance: HYDROXYZINE HYDROCHLORIDE
     Indication: Drug eruption

REACTIONS (1)
  - Product use in unapproved indication [Unknown]
